FAERS Safety Report 10389590 (Version 1)
Quarter: 2014Q3

REPORT INFORMATION
  Report Type: Spontaneous
  Country: US (occurrence: None)
  Receive Date: 20140812
  Receipt Date: 20140812
  Transmission Date: 20150326
  Serious: Yes (Hospitalization)
  Sender: FDA-Public Use
  Company Number: AUR-APL-2014-08541

PATIENT
  Age: 14 Year
  Sex: Female

DRUGS (5)
  1. MELATONIN (MELATONIN) [Suspect]
     Active Substance: MELATONIN
     Indication: SUICIDAL IDEATION
     Route: 048
  2. OMEPRAZOLE (OMEPRAZOLE) [Suspect]
     Active Substance: OMEPRAZOLE
     Indication: SUICIDAL IDEATION
     Route: 048
  3. CITALOPRAM (CITALOPRAM) [Suspect]
     Active Substance: CITALOPRAM HYDROBROMIDE
     Indication: SUICIDAL IDEATION
     Route: 048
  4. DOXYCYCLINE HYCLATE. [Suspect]
     Active Substance: DOXYCYCLINE HYCLATE
     Indication: SUICIDAL IDEATION
     Dosage: UNK ORAL
     Route: 048
  5. OXCARBAZEPINE (OXCARBAZEPINE) [Suspect]
     Active Substance: OXCARBAZEPINE
     Indication: SUICIDAL IDEATION
     Route: 048

REACTIONS (3)
  - Vomiting [None]
  - Intentional overdose [None]
  - Mental status changes [None]
